FAERS Safety Report 6750949-X (Version None)
Quarter: 2010Q2

REPORT INFORMATION
  Report Type: 
  Country: None (occurrence: None)
  Receive Date: 20100526
  Receipt Date: 20100519
  Transmission Date: 20101027
  Serious: Yes (Life-Threatening)
  Sender: FDA-Public Use
  Company Number: WAES 1005USA02795

PATIENT
  Age: 67 Year
  Sex: Male
  Weight: 58.0604 kg

DRUGS (2)
  1. ZOCOR [Suspect]
     Indication: ACUTE CORONARY SYNDROME
     Dosage: 80 MG/DAILY/PO
     Route: 048
     Dates: start: 20070529
  2. PLACEBO (UNSPECIFIED) UNK [Suspect]
     Indication: ACUTE CORONARY SYNDROME
     Dosage: /PO
     Route: 048
     Dates: start: 20070529

REACTIONS (1)
  - RECTAL CANCER [None]
